FAERS Safety Report 4293608-8 (Version None)
Quarter: 2004Q1

REPORT INFORMATION
  Report Type: 
  Country: None (occurrence: None)
  Receive Date: 20040212
  Receipt Date: 20031202
  Transmission Date: 20041129
  Serious: Yes (Hospitalization)
  Sender: FDA-Public Use
  Company Number: 200320422US

PATIENT
  Sex: Female
  Weight: 45 kg

DRUGS (29)
  1. ARAVA [Suspect]
     Indication: RHEUMATOID ARTHRITIS
     Dosage: DOSE: 100 (X 3 DAYS)
     Route: 048
     Dates: start: 20011101, end: 20011201
  2. METHOTREXATE [Concomitant]
     Indication: RHEUMATOID ARTHRITIS
     Dates: end: 20011201
  3. LEVOXYL [Concomitant]
     Route: 048
  4. PREDNISONE [Concomitant]
     Route: 048
  5. CALTRATE + D [Concomitant]
     Route: 048
  6. VITAMIN C [Concomitant]
     Dosage: DOSE: UNK
  7. VITAMIN E [Concomitant]
     Dosage: DOSE: UNK
  8. VITAMIN A [Concomitant]
     Dosage: DOSE: UNK
  9. FOLIC ACID [Concomitant]
  10. AGGRENOX [Concomitant]
     Dosage: DOSE: ONE
  11. PEPCID [Concomitant]
     Dosage: DOSE: PRN
  12. ASPIRIN [Concomitant]
  13. ZOCOR [Concomitant]
     Route: 048
  14. FOSAMAX [Concomitant]
     Route: 048
  15. ATACAND [Concomitant]
     Dosage: DOSE: 32/12.5
     Route: 048
  16. MICRO-K [Concomitant]
     Route: 048
  17. REMERON [Concomitant]
     Route: 048
  18. PSORCON [Concomitant]
     Route: 061
  19. FORTAZ [Concomitant]
     Dosage: DOSE: UNK
  20. TRIAMCINOLONE [Concomitant]
     Indication: JOINT SWELLING
     Dosage: DOSE: IM INJ EVERY MONTH
  21. ACCUZYME [Concomitant]
     Dosage: DOSE: UNK
     Route: 061
  22. LOPRESSOR [Concomitant]
     Route: 048
  23. LANOXIN [Concomitant]
     Route: 048
  24. LASIX [Concomitant]
     Route: 048
  25. ENSURE [Concomitant]
     Dosage: DOSE: 1 CAN
     Route: 048
  26. SURFAK [Concomitant]
     Route: 048
  27. NEOSPORIN [Concomitant]
     Dosage: DOSE: APPLY
     Route: 061
  28. RESTORIL [Concomitant]
     Dosage: DOSE: 7.5 (PRN)
     Route: 048
  29. TYLENOL (CAPLET) [Concomitant]
     Dosage: DOSE: PRN
     Route: 048

REACTIONS (14)
  - ACUTE MYOCARDIAL INFARCTION [None]
  - ACUTE PULMONARY OEDEMA [None]
  - ANAEMIA [None]
  - APHTHOUS STOMATITIS [None]
  - ASTHENIA [None]
  - CHILLS [None]
  - FATIGUE [None]
  - HAEMATOCRIT DECREASED [None]
  - HAEMOGLOBIN DECREASED [None]
  - LEUKOPENIA [None]
  - PYREXIA [None]
  - RESPIRATORY FAILURE [None]
  - SEPTIC SHOCK [None]
  - WHITE BLOOD CELL COUNT DECREASED [None]
